FAERS Safety Report 7628145-3 (Version None)
Quarter: 2011Q3

REPORT INFORMATION
  Report Type: 
  Country: None (occurrence: None)
  Receive Date: 20110722
  Receipt Date: 20110711
  Transmission Date: 20111222
  Serious: Yes (Hospitalization)
  Sender: FDA-Public Use
  Company Number: NZ-AMGEN-NZLSP2011030555

PATIENT
  Age: 50 Year
  Sex: Female
  Weight: 65 kg

DRUGS (12)
  1. ENBREL [Suspect]
     Indication: PSORIATIC ARTHROPATHY
     Dosage: 50 MG, WEEKLY
     Route: 058
     Dates: start: 20110504, end: 20110607
  2. METFORMIN HCL [Concomitant]
     Indication: DIABETES MELLITUS
     Dosage: 1000 MG, 1X/DAY
     Route: 048
  3. VOLTAREN [Concomitant]
     Dosage: UNK
  4. GLICLAZIDE [Concomitant]
     Indication: DIABETES MELLITUS
     Dosage: 100 MG, 1X/DAY
     Route: 048
  5. GLICLAZIDE [Concomitant]
     Dosage: 150 MG, BID
  6. CARBAMAZEPINE A [Concomitant]
     Dosage: 400 MG, 2X/DAY
  7. METHOTREXATE SODIUM [Suspect]
     Indication: PSORIATIC ARTHROPATHY
     Dosage: 20 MG, QWK
     Route: 048
     Dates: start: 20101007, end: 20110607
  8. DICLOFENAC [Concomitant]
     Indication: ARTHRITIS
     Dosage: 100 MG, 1X/DAY
     Route: 048
  9. INIBACE [Concomitant]
     Dosage: 0.5 MG, 1X/DAY
     Route: 048
  10. PREDNISONE [Concomitant]
     Dosage: UNK
  11. ACETAMINOPHEN [Concomitant]
     Dosage: 1 G, AS NEEDED
  12. FOLIC ACID [Concomitant]
     Dosage: 5 MG, 1X/DAY

REACTIONS (3)
  - PNEUMONITIS [None]
  - DIARRHOEA [None]
  - INFECTION [None]
